FAERS Safety Report 8211469-9 (Version None)
Quarter: 2012Q1

REPORT INFORMATION
  Report Type: 
  Country: None (occurrence: None)
  Receive Date: 20120315
  Receipt Date: 20120308
  Transmission Date: 20120608
  Serious: Yes (Other)
  Sender: FDA-Public Use
  Company Number: DE-PFIZER INC-2012061804

PATIENT
  Age: 52 Year
  Sex: Female
  Weight: 70 kg

DRUGS (2)
  1. TYGACIL [Suspect]
     Indication: INFECTION
     Dosage: UNK
     Route: 042
     Dates: start: 20110113, end: 20110121
  2. TAXOL [Suspect]
     Dosage: 130 MG, WEEKLY
     Dates: start: 20101001

REACTIONS (2)
  - SCINTILLATING SCOTOMA [None]
  - VISUAL ACUITY REDUCED [None]
